FAERS Safety Report 5233061-0 (Version None)
Quarter: 2007Q1

REPORT INFORMATION
  Report Type: 
  Country: None (occurrence: None)
  Receive Date: 20061204
  Receipt Date: 20061010
  Transmission Date: 20070707
  Serious: No
  Sender: FDA-Public Use
  Company Number: 2006-BP-11385BP

PATIENT
  Age: 75 Year
  Sex: Female

DRUGS (11)
  1. SPIRIVA [Suspect]
     Indication: EMPHYSEMA
     Dosage: 18 MCG (18 MCG,1 IN 1 D),IH
     Dates: start: 20060615, end: 20060822
  2. BLOOD PRESSURE MEDICATION(ALL OTHER THERAPEUTIC PRODUCTS) [Concomitant]
  3. CHOLESTEROL MEDICINE(CHOLESTEROL- AND TRIGLYCERIDE REDUCERS) [Concomitant]
  4. OXYGEN (OXYGEN) [Concomitant]
  5. TRICOR [Concomitant]
  6. NORVASC [Concomitant]
  7. BENICAR [Concomitant]
  8. CLONIDINE [Concomitant]
  9. PROTONIX [Concomitant]
  10. PROZAC [Concomitant]
  11. PREMARIN [Concomitant]

REACTIONS (3)
  - ASTHENIA [None]
  - DYSPHONIA [None]
  - EYELID DISORDER [None]
